FAERS Safety Report 24134926 (Version 3)
Quarter: 2024Q3

REPORT INFORMATION
  Report Type: Report from Study
  Country: JP (occurrence: JP)
  Receive Date: 20240725
  Receipt Date: 20240726
  Transmission Date: 20241017
  Serious: Yes (Death)
  Sender: MERZ
  Company Number: JP-teijin-202401955_XEO_P_1

PATIENT
  Age: 87 Year
  Sex: Male
  Weight: 51.3 kg

DRUGS (10)
  1. XEOMIN [Suspect]
     Active Substance: INCOBOTULINUMTOXINA
     Indication: Muscle spasticity
     Dosage: 400 025
     Route: 030
     Dates: start: 20231012, end: 20231012
  2. NORSPAN [Concomitant]
     Active Substance: BUPRENORPHINE
     Indication: Pain
     Dosage: 10 MG ONCE A WEEK
     Route: 003
  3. Acetaminophen suppositories 100 Kobayashi [Concomitant]
     Indication: Pain
     Dosage: 200 MG AS NEEDED FOR PAIN
     Route: 054
  4. GLYCERIN [Concomitant]
     Active Substance: GLYCERIN
     Indication: Constipation
     Dosage: 60 ML AS NEEDED FOR CONSTIPATION
     Route: 054
  5. ASTEMARINE-3 [Concomitant]
     Indication: Dehydration
     Dosage: 500 ML
  6. FESIN [Concomitant]
     Indication: Iron deficiency anaemia
     Dosage: 40 MG
     Route: 042
     Dates: end: 20231031
  7. AMINO ACIDS\ELECTROLYTES NOS [Concomitant]
     Active Substance: AMINO ACIDS\ELECTROLYTES NOS
     Indication: Malnutrition
     Dosage: 200 ML
  8. DEXTROSE [Concomitant]
     Active Substance: DEXTROSE\DEXTROSE MONOHYDRATE
     Indication: Malnutrition
     Dosage: 350 ML
  9. DAIMEDIN MULTI [Concomitant]
     Indication: Malnutrition
     Dosage: 1 DOSAGE FORM
  10. FUROSEMIDE [Concomitant]
     Active Substance: FUROSEMIDE
     Indication: Cardiac failure congestive
     Dosage: 20 MG

REACTIONS (3)
  - Pneumonia [Fatal]
  - Cholangitis acute [Fatal]
  - Off label use [Unknown]

NARRATIVE: CASE EVENT DATE: 20231012
